FAERS Safety Report 24192223 (Version 3)
Quarter: 2025Q2

REPORT INFORMATION
  Report Type: Report from Study
  Country: US (occurrence: US)
  Receive Date: 20240809
  Receipt Date: 20250613
  Transmission Date: 20250716
  Serious: Yes (Other)
  Sender: ACADIA PHARMACEUTICALS
  Company Number: US-ACADIA PHARMACEUTICALS INC.-ACA-2024-PIM-003625

PATIENT
  Sex: Male

DRUGS (11)
  1. NUPLAZID [Suspect]
     Active Substance: PIMAVANSERIN TARTRATE
     Indication: Parkinson^s disease psychosis
     Dosage: 34 MILLIGRAM, QD (WITHOUT REGARDS TO FOOD)
     Route: 048
     Dates: start: 20240529
  2. DULCOLAX (BISACODYL) [Concomitant]
     Active Substance: BISACODYL
  3. FINASTERIDE [Concomitant]
     Active Substance: FINASTERIDE
  4. MESALAMINE [Concomitant]
     Active Substance: MESALAMINE
  5. MINERALS\VITAMINS [Concomitant]
     Active Substance: MINERALS\VITAMINS
  6. QUETIAPINE [Concomitant]
     Active Substance: QUETIAPINE
  7. RIVASTIGMINE [Concomitant]
     Active Substance: RIVASTIGMINE
  8. SINEMET [Concomitant]
     Active Substance: CARBIDOPA\LEVODOPA
  9. TAMSULOSIN [Concomitant]
     Active Substance: TAMSULOSIN
  10. TYLENOL [Concomitant]
     Active Substance: ACETAMINOPHEN
  11. VITAMIN B12 [Concomitant]
     Active Substance: CYANOCOBALAMIN

REACTIONS (3)
  - Hallucination [Not Recovered/Not Resolved]
  - Confusional state [Unknown]
  - Therapy interrupted [Recovered/Resolved]
